FAERS Safety Report 14172647 (Version 1)
Quarter: 2017Q4

REPORT INFORMATION
  Report Type: Spontaneous
  Country: US (occurrence: US)
  Receive Date: 20171108
  Receipt Date: 20171108
  Transmission Date: 20180321
  Serious: Yes (Life-Threatening)
  Sender: FDA-Public Use
  Company Number: None

PATIENT
  Age: 55 Year
  Sex: Male

DRUGS (1)
  1. AMOXIL [Suspect]
     Active Substance: AMOXICILLIN

REACTIONS (7)
  - Oropharyngeal pain [None]
  - Presyncope [None]
  - Urticaria [None]
  - Dyspnoea [None]
  - Nausea [None]
  - Rash pruritic [None]
  - Vomiting [None]

NARRATIVE: CASE EVENT DATE: 20170921
